FAERS Safety Report 4756064-9 (Version None)
Quarter: 2005Q3

REPORT INFORMATION
  Report Type: 
  Country: None (occurrence: None)
  Receive Date: 20050830
  Receipt Date: 20050810
  Transmission Date: 20060218
  Serious: Yes (Other)
  Sender: FDA-Public Use
  Company Number: PHBS2005BR11766

PATIENT
  Age: 40 Year
  Sex: Female
  Weight: 56 kg

DRUGS (3)
  1. CLONAZEPAM [Concomitant]
     Indication: NERVOUS SYSTEM DISORDER
     Dosage: 0.5 DF, BID
     Route: 048
     Dates: start: 19860101
  2. TOFRANIL [Suspect]
     Indication: DEPRESSION
     Dosage: 25 MG/D
     Route: 048
     Dates: start: 20020101, end: 20020101
  3. EQUILID [Concomitant]
     Indication: DEPRESSION
     Dosage: 0.25 DF, BID
     Route: 048

REACTIONS (7)
  - DEPRESSED MOOD [None]
  - EYE DISORDER [None]
  - HYPOAESTHESIA [None]
  - MENTAL DISORDER [None]
  - TOXOPLASMOSIS [None]
  - VISION BLURRED [None]
  - VISUAL DISTURBANCE [None]
